FAERS Safety Report 17187792 (Version 1)
Quarter: 2019Q4

REPORT INFORMATION
  Report Type: Spontaneous
  Country: PL (occurrence: PL)
  Receive Date: 20191221
  Receipt Date: 20191221
  Transmission Date: 20200122
  Serious: Yes (Life-Threatening, Hospitalization)
  Sender: FDA-Public Use
  Company Number: PL-ACCORD-166036

PATIENT
  Age: 33 Year
  Sex: Male

DRUGS (4)
  1. MYCOPHENOLIC ACID. [Suspect]
     Active Substance: MYCOPHENOLIC ACID
     Indication: IMMUNOSUPPRESSION
     Dosage: 2?G,?DAILY
  2. CICLOSPORIN [Suspect]
     Active Substance: CYCLOSPORINE
     Indication: IMMUNOSUPPRESSION
  3. PREDNISOLONE. [Suspect]
     Active Substance: PREDNISOLONE
     Indication: IMMUNOSUPPRESSION
  4. INSULIN [Concomitant]
     Active Substance: INSULIN NOS
     Indication: DIABETES MELLITUS
     Dosage: UNK
     Route: 065

REACTIONS (16)
  - Kaposi^s sarcoma [Recovered/Resolved]
  - Thrombosis [Unknown]
  - Asthenia [Unknown]
  - Diarrhoea [Unknown]
  - Leukopenia [Unknown]
  - Transplant failure [Unknown]
  - Cytomegalovirus infection [Unknown]
  - Anaemia [Unknown]
  - Renal failure [Unknown]
  - Thrombocytopenia [Unknown]
  - Gastrointestinal haemorrhage [Unknown]
  - Gastric ulcer haemorrhage [Unknown]
  - Melaena [Unknown]
  - Diabetes mellitus [Unknown]
  - Pyrexia [Unknown]
  - Gastritis erosive [Unknown]

NARRATIVE: CASE EVENT DATE: 200701
